FAERS Safety Report 9247976 (Version 1)
Quarter: 2013Q1

REPORT INFORMATION
  Report Type: Spontaneous
  Country: US (occurrence: None)
  Receive Date: 20130305
  Receipt Date: 20130305
  Transmission Date: 20140127
  Serious: Yes (Other)
  Sender: FDA-Public Use
  Company Number: 163-21880-12101128

PATIENT
  Age: 55 Year
  Sex: Female

DRUGS (5)
  1. REVLIMID [Suspect]
     Indication: PLASMA CELL MYELOMA
     Dosage: 21 IN 28 D
     Route: 048
     Dates: start: 20120514
  2. GABAPENTIN(GABAPENTIN)(UNKNOWN) [Concomitant]
  3. VITAMIN B12(CYANOCOBALAMIN)(UNKNOWN) [Concomitant]
  4. VITAMIN B12(CYANOCOBALAMIN)(UNKNOWN) [Concomitant]
  5. VITAMIN D(ERGOCALCIFEROL) (UNKNOWN) [Concomitant]

REACTIONS (2)
  - Upper respiratory tract congestion [None]
  - Paraesthesia [None]
